FAERS Safety Report 4405545-6 (Version None)
Quarter: 2004Q3

REPORT INFORMATION
  Report Type: 
  Country: None (occurrence: None)
  Receive Date: 20040723
  Receipt Date: 20030926
  Transmission Date: 20050211
  Serious: No
  Sender: FDA-Public Use
  Company Number: US-GLAXOSMITHKLINE-A0427670A

PATIENT
  Age: 75 Year
  Sex: Female

DRUGS (9)
  1. AVANDIA [Suspect]
     Dosage: 2MG TWICE PER DAY
     Route: 048
     Dates: start: 20000801, end: 20030827
  2. GLUCOTROL XL [Concomitant]
  3. AVAPRO [Concomitant]
  4. CALAN [Concomitant]
  5. SYNTHROID [Concomitant]
  6. LANOXIN [Concomitant]
  7. COUMADIN [Concomitant]
  8. SPIRONOLACTONE [Concomitant]
  9. LASIX [Concomitant]

REACTIONS (1)
  - OEDEMA [None]
